FAERS Safety Report 8230071-6 (Version None)
Quarter: 2012Q1

REPORT INFORMATION
  Report Type: 
  Country: None (occurrence: None)
  Receive Date: 20120323
  Receipt Date: 20120321
  Transmission Date: 20120608
  Serious: No
  Sender: FDA-Public Use
  Company Number: US-PFIZER INC-2012074048

PATIENT
  Sex: Female
  Weight: 93.878 kg

DRUGS (8)
  1. METFORMIN [Concomitant]
     Dosage: UNK
  2. CYMBALTA [Concomitant]
     Indication: FIBROMYALGIA
     Dosage: UNK
  3. HYDROCORTISONE [Concomitant]
     Indication: RENAL PAIN
     Dosage: UNK, 3X/DAY
  4. LISINOPRIL [Concomitant]
     Indication: HYPERTENSION
     Dosage: 20 MG, UNK
  5. NIFEDIPINE [Concomitant]
     Indication: HYPERTENSION
     Dosage: 30 MG, UNK
  6. VALIUM [Concomitant]
     Dosage: UNK, 2X/DAY
  7. LYRICA [Suspect]
     Indication: FIBROMYALGIA
     Dosage: 50 MG, 1X/DAY
     Route: 048
     Dates: start: 20100201, end: 20120126
  8. HYDROCORTISONE [Concomitant]
     Indication: BACK PAIN

REACTIONS (2)
  - PAIN [None]
  - FATIGUE [None]
